FAERS Safety Report 16799749 (Version 1)
Quarter: 2019Q3

REPORT INFORMATION
  Report Type: Spontaneous
  Country: US (occurrence: US)
  Receive Date: 20190722
  Receipt Date: 20190722
  Transmission Date: 20191005
  Serious: Yes (Other)
  Sender: FDA-Public Use
  Company Number: None

PATIENT
  Age: 72 Year
  Sex: Female
  Weight: 67.13 kg

DRUGS (4)
  1. CELEBREX [Concomitant]
     Active Substance: CELECOXIB
  2. LEVOFLOXIN [Suspect]
     Active Substance: LEVOFLOXACIN
     Indication: COUGH
     Dosage: ?          QUANTITY:500 MG MILLIGRAM(S);?
     Route: 048
     Dates: start: 20190612, end: 20190617
  3. SYNTHROID [Concomitant]
     Active Substance: LEVOTHYROXINE SODIUM
  4. 1 DAY VITAMINS [Concomitant]

REACTIONS (3)
  - Gait disturbance [None]
  - Myalgia [None]
  - Tinnitus [None]

NARRATIVE: CASE EVENT DATE: 20190615
